FAERS Safety Report 24658989 (Version 3)
Quarter: 2025Q1

REPORT INFORMATION
  Report Type: Spontaneous
  Country: CA (occurrence: CA)
  Receive Date: 20241125
  Receipt Date: 20250129
  Transmission Date: 20250408
  Serious: Yes (Other)
  Sender: CELLTRION
  Company Number: CA-PFIZER INC-PV202400106633

PATIENT

DRUGS (8)
  1. INFLECTRA [Suspect]
     Active Substance: INFLIXIMAB-DYYB
     Indication: Colitis ulcerative
     Route: 042
     Dates: start: 20230626
  2. INFLECTRA [Suspect]
     Active Substance: INFLIXIMAB-DYYB
     Route: 042
     Dates: start: 20240810
  3. INFLECTRA [Suspect]
     Active Substance: INFLIXIMAB-DYYB
     Route: 042
     Dates: start: 20241004
  4. INFLECTRA [Suspect]
     Active Substance: INFLIXIMAB-DYYB
     Route: 042
     Dates: start: 20241129
  5. FLECAINIDE [Concomitant]
     Active Substance: FLECAINIDE
  6. METOPROLOL [Concomitant]
     Active Substance: METOPROLOL
  7. OZEMPIC [Concomitant]
     Active Substance: SEMAGLUTIDE
  8. PROCTOFOAM [Concomitant]
     Active Substance: PRAMOXINE HYDROCHLORIDE

REACTIONS (1)
  - Polyp [Unknown]
